FAERS Safety Report 5983123-5 (Version None)
Quarter: 2008Q4

REPORT INFORMATION
  Report Type: 
  Country: None (occurrence: None)
  Receive Date: 20081208
  Receipt Date: 20081127
  Transmission Date: 20090506
  Serious: Yes (Hospitalization)
  Sender: FDA-Public Use
  Company Number: GB-BAUSCH-2008BL004994

PATIENT
  Age: 39 Year
  Sex: Female

DRUGS (5)
  1. PREDNISOLONE [Suspect]
     Indication: BRONCHOSPASM
     Route: 048
     Dates: start: 20080529, end: 20080615
  2. PREDNISOLONE [Suspect]
     Indication: LOWER RESPIRATORY TRACT INFECTION
     Route: 048
     Dates: start: 20080529, end: 20080615
  3. CLARITHROMYCIN [Suspect]
     Indication: LOWER RESPIRATORY TRACT INFECTION
     Route: 048
     Dates: start: 20080606, end: 20080612
  4. CHLORPROMAZINE [Concomitant]
     Route: 048
     Dates: start: 20080616, end: 20080630
  5. DIAZEPAM [Concomitant]
     Route: 048
     Dates: start: 20080616, end: 20080630

REACTIONS (2)
  - ENCEPHALITIS VIRAL [None]
  - PSYCHOTIC DISORDER [None]
